FAERS Safety Report 4505755-3 (Version None)
Quarter: 2004Q4

REPORT INFORMATION
  Report Type: 
  Country: None (occurrence: None)
  Receive Date: 20041119
  Receipt Date: 20040630
  Transmission Date: 20050328
  Serious: Yes (Death)
  Sender: FDA-Public Use
  Company Number: CH-GLAXOSMITHKLINE-B0337285A

PATIENT
  Age: 57 Year
  Sex: Male

DRUGS (8)
  1. MELPHALAN [Suspect]
     Dosage: 140MGM2 PER DAY
     Route: 042
  2. ETOPOSIDE [Suspect]
     Dosage: 200MGM2 TWICE PER DAY
     Route: 042
  3. CARMUSTINE [Suspect]
     Dosage: 300MGM2 PER DAY
     Route: 042
  4. ARA-C [Suspect]
     Dosage: 200MGM2 TWICE PER DAY
     Route: 042
  5. FLUDARA [Concomitant]
     Dosage: 30MGM2 UNKNOWN
     Route: 042
  6. TOTAL BODY IRRADIATION [Concomitant]
     Route: 065
  7. CYCLOSPORINE [Concomitant]
     Indication: PROPHYLAXIS
     Route: 042
  8. ANTIFUNGAL [Concomitant]
     Indication: PROPHYLAXIS
     Route: 042

REACTIONS (4)
  - FUNGAL INFECTION [None]
  - NEUTROPENIA [None]
  - SEPSIS [None]
  - STEM CELL TRANSPLANT [None]
